FAERS Safety Report 6213804-X (Version None)
Quarter: 2009Q2

REPORT INFORMATION
  Report Type: 
  Country: None (occurrence: None)
  Receive Date: 20090602
  Receipt Date: 20090526
  Transmission Date: 20091009
  Serious: Yes (Hospitalization)
  Sender: FDA-Public Use
  Company Number: 1022556-2009-00038

PATIENT
  Sex: Female

DRUGS (3)
  1. CAPZASIN QUICK RELIEF GEL [Suspect]
     Indication: ANALGESIC THERAPY
     Dosage: 1X, TOPICAL
     Route: 061
     Dates: start: 20090521
  2. ZOCOR [Concomitant]
  3. HYDROCHLOROTHIAZIDE [Concomitant]

REACTIONS (3)
  - BACK PAIN [None]
  - CEREBROVASCULAR ACCIDENT [None]
  - DRUG DOSE OMISSION [None]
